FAERS Safety Report 9988702 (Version 2)
Quarter: 2014Q1

REPORT INFORMATION
  Report Type: Spontaneous
  Country: CN (occurrence: CN)
  Receive Date: 20140310
  Receipt Date: 20140310
  Transmission Date: 20141002
  Serious: Yes (Other)
  Sender: FDA-Public Use
  Company Number: 2014SP001260

PATIENT
  Sex: Male

DRUGS (2)
  1. METHOTREXATE [Suspect]
     Indication: LUNG ADENOCARCINOMA
     Route: 037
  2. DEXAMETHASONE [Suspect]
     Indication: LUNG ADENOCARCINOMA
     Route: 037

REACTIONS (3)
  - Bone marrow failure [Recovering/Resolving]
  - Leukopenia [Unknown]
  - Thrombocytopenia [Unknown]
